FAERS Safety Report 20616026 (Version 1)
Quarter: 2022Q1

REPORT INFORMATION
  Report Type: Report from Study
  Country: IT (occurrence: IT)
  Receive Date: 20220321
  Receipt Date: 20220321
  Transmission Date: 20220424
  Serious: Yes (Hospitalization, Other)
  Sender: FDA-Public Use
  Company Number: None

PATIENT
  Age: 57 Year
  Sex: Male

DRUGS (2)
  1. IBUPROFEN [Suspect]
     Active Substance: IBUPROFEN
     Indication: Infection
     Dosage: 1 DOSAGE FORM, TOTAL
     Route: 048
     Dates: start: 20211228, end: 20211228
  2. KETOPROFEN LYSINE [Suspect]
     Active Substance: KETOPROFEN LYSINE
     Indication: Chills
     Dosage: 1 DOSAGE FORM, TOTAL
     Route: 048
     Dates: start: 20211228, end: 20211228

REACTIONS (2)
  - Loss of consciousness [Recovering/Resolving]
  - Rash [Recovering/Resolving]

NARRATIVE: CASE EVENT DATE: 20211228
